FAERS Safety Report 13624495 (Version 1)
Quarter: 2017Q2

REPORT INFORMATION
  Report Type: Spontaneous
  Country: US (occurrence: US)
  Receive Date: 20170607
  Receipt Date: 20170607
  Transmission Date: 20170830
  Serious: No
  Sender: FDA-Public Use
  Company Number: US-PURDUE-USA-2016-0135509

PATIENT
  Sex: Female

DRUGS (1)
  1. BUTRANS [Suspect]
     Active Substance: BUPRENORPHINE
     Indication: PRODUCT USED FOR UNKNOWN INDICATION
     Dosage: 5 MCG/HR, WEEKLY
     Route: 062
     Dates: start: 20161129

REACTIONS (7)
  - Joint swelling [Unknown]
  - Weight increased [Unknown]
  - Burning sensation [Unknown]
  - Paraesthesia [Unknown]
  - Abdominal distension [Unknown]
  - Swelling face [Unknown]
  - Hypoaesthesia [Unknown]

NARRATIVE: CASE EVENT DATE: 20161214
